FAERS Safety Report 12042356 (Version 12)
Quarter: 2025Q2

REPORT INFORMATION
  Report Type: Report from Study
  Country: US (occurrence: US)
  Receive Date: 20160208
  Receipt Date: 20250507
  Transmission Date: 20250717
  Serious: Yes (Hospitalization, Other)
  Sender: TAKEDA
  Company Number: US-TAKEDA-2016MPI000600

PATIENT
  Age: 74 Year
  Sex: Female
  Weight: 102 kg

DRUGS (49)
  1. IXAZOMIB [Suspect]
     Active Substance: IXAZOMIB
     Indication: Plasma cell myeloma
     Dosage: 4 MILLIGRAM, QD
     Dates: start: 201601
  2. IXAZOMIB [Suspect]
     Active Substance: IXAZOMIB
     Indication: Plasma cell myeloma in remission
     Dosage: 3 MILLIGRAM, QD
     Dates: start: 20190116
  3. IXAZOMIB [Suspect]
     Active Substance: IXAZOMIB
  4. IXAZOMIB [Suspect]
     Active Substance: IXAZOMIB
  5. REVLIMID [Suspect]
     Active Substance: LENALIDOMIDE
     Indication: Plasma cell myeloma
  6. VITAMIN D3 [Concomitant]
     Active Substance: CHOLECALCIFEROL
  7. JANUVIA [Concomitant]
     Active Substance: SITAGLIPTIN PHOSPHATE
  8. METFORMIN [Concomitant]
     Active Substance: METFORMIN HYDROCHLORIDE
  9. METOPROLOL TARTRATE [Concomitant]
     Active Substance: METOPROLOL TARTRATE
  10. METROGEL [Concomitant]
     Active Substance: METRONIDAZOLE
  11. POTASSIUM CHLORIDE [Concomitant]
     Active Substance: POTASSIUM CHLORIDE
  12. PROCHLORPERAZINE MALEATE [Concomitant]
     Active Substance: PROCHLORPERAZINE MALEATE
  13. RANITIDINE [Concomitant]
     Active Substance: RANITIDINE
  14. SPIRONOLACTONE [Concomitant]
     Active Substance: SPIRONOLACTONE
  15. VENLAFAXINE [Concomitant]
     Active Substance: VENLAFAXINE HYDROCHLORIDE
  16. ACYCLOVIR [Concomitant]
     Active Substance: ACYCLOVIR
  17. ATORVASTATIN [Concomitant]
     Active Substance: ATORVASTATIN
  18. BREO ELLIPTA [Concomitant]
     Active Substance: FLUTICASONE FUROATE\VILANTEROL TRIFENATATE
  19. BUPROPION [Concomitant]
     Active Substance: BUPROPION
  20. COMBIVENT [Concomitant]
     Active Substance: ALBUTEROL SULFATE\IPRATROPIUM BROMIDE
  21. ELIQUIS [Concomitant]
     Active Substance: APIXABAN
  22. ENTRESTO [Concomitant]
     Active Substance: SACUBITRIL\VALSARTAN
  23. FUROSEMIDE [Concomitant]
     Active Substance: FUROSEMIDE
  24. ALBUTEROL SULFATE [Concomitant]
     Active Substance: ALBUTEROL SULFATE
  25. AMIODARONE [Concomitant]
     Active Substance: AMIODARONE
  26. AZELASTINE [Concomitant]
     Active Substance: AZELASTINE
  27. BUMETANIDE [Concomitant]
     Active Substance: BUMETANIDE
  28. COENZYME Q10 [Concomitant]
     Active Substance: DIETARY SUPPLEMENT\UBIDECARENONE
  29. CYANOCOBALAMIN [Concomitant]
     Active Substance: CYANOCOBALAMIN
  30. DEXAMETHASONE [Concomitant]
     Active Substance: DEXAMETHASONE
  31. DULERA [Concomitant]
     Active Substance: FORMOTEROL FUMARATE DIHYDRATE\MOMETASONE FUROATE
  32. FARXIGA [Concomitant]
     Active Substance: DAPAGLIFLOZIN PROPANEDIOL
  33. FERROUS SULFATE [Concomitant]
     Active Substance: FERROUS SULFATE
  34. FISH OIL [Concomitant]
     Active Substance: FISH OIL
  35. FLAXSEED [Concomitant]
     Active Substance: FLAX SEED
  36. FLUTICASONE [Concomitant]
     Active Substance: FLUTICASONE
  37. GABAPENTIN [Concomitant]
     Active Substance: GABAPENTIN
  38. JARDIANCE [Concomitant]
     Active Substance: EMPAGLIFLOZIN
  39. LOMOTIL [Concomitant]
     Active Substance: ATROPINE SULFATE\DIPHENOXYLATE HYDROCHLORIDE
  40. MAGNESIUM [Concomitant]
     Active Substance: MAGNESIUM
  41. MELATONIN [Concomitant]
     Active Substance: MELATONIN
  42. PHENERGAN [Concomitant]
     Active Substance: PROMETHAZINE HYDROCHLORIDE
  43. TORSEMIDE [Concomitant]
     Active Substance: TORSEMIDE
  44. TYLENOL [Concomitant]
     Active Substance: ACETAMINOPHEN
  45. FAMOTIDINE [Concomitant]
     Active Substance: FAMOTIDINE
  46. OMEGA 3 [Concomitant]
     Active Substance: CAPSAICIN
  47. MOUNJARO [Concomitant]
     Active Substance: TIRZEPATIDE
  48. IRON [Concomitant]
     Active Substance: IRON
  49. RYBELSUS [Concomitant]
     Active Substance: SEMAGLUTIDE

REACTIONS (15)
  - Cardiac failure congestive [Recovered/Resolved]
  - Atrial fibrillation [Recovered/Resolved]
  - Diabetes mellitus [Unknown]
  - Fatigue [Unknown]
  - Cough [Unknown]
  - Nausea [Unknown]
  - Vomiting [Not Recovered/Not Resolved]
  - Oedema peripheral [Unknown]
  - Rash [Recovering/Resolving]
  - Diarrhoea [Unknown]
  - Off label use [Not Recovered/Not Resolved]
  - Dyspnoea exertional [Unknown]
  - Fluid retention [Unknown]
  - Exercise tolerance decreased [Unknown]
  - Weight decreased [Unknown]

NARRATIVE: CASE EVENT DATE: 20250124
